FAERS Safety Report 9289363 (Version 1)
Quarter: 2013Q2

REPORT INFORMATION
  Report Type: Spontaneous
  Country: US (occurrence: US)
  Receive Date: 20130514
  Receipt Date: 20130514
  Transmission Date: 20140414
  Serious: Yes (Other)
  Sender: FDA-Public Use
  Company Number: CHPA2013US008049

PATIENT
  Age: 92 Year
  Sex: Male

DRUGS (2)
  1. LAMISIL AT ATHLETE^S FOOT CREAM [Suspect]
     Indication: BURNING SENSATION
     Dosage: UNK DF, QOD
     Route: 061
  2. LAMISIL AT ATHLETE^S FOOT CREAM [Suspect]
     Indication: PRURITUS

REACTIONS (3)
  - Vascular occlusion [Recovered/Resolved]
  - Therapeutic response decreased [Unknown]
  - Inappropriate schedule of drug administration [Unknown]
